FAERS Safety Report 8804530 (Version 1)
Quarter: 2012Q4

REPORT INFORMATION
  Report Type: 
  Country: US (occurrence: US)
  Receive Date: 20120924
  Receipt Date: 20120924
  Transmission Date: 20130627
  Serious: Yes (Death)
  Sender: FDA-Public Use
  Company Number: US-ROCHE-1104441

PATIENT
  Sex: Male

DRUGS (10)
  1. AVASTIN [Suspect]
     Indication: BRAIN NEOPLASM MALIGNANT
     Route: 065
     Dates: start: 20070507
  2. AVASTIN [Suspect]
     Indication: METASTATIC MALIGNANT MELANOMA
     Route: 065
     Dates: start: 20070521
  3. AVASTIN [Suspect]
     Route: 065
     Dates: start: 20070604
  4. AVASTIN [Suspect]
     Route: 065
     Dates: start: 20070618
  5. AVASTIN [Suspect]
     Route: 065
     Dates: start: 20070702
  6. AVASTIN [Suspect]
     Route: 065
     Dates: start: 20070718
  7. AVASTIN [Suspect]
     Route: 065
     Dates: start: 20070730
  8. TAXOL [Concomitant]
  9. DILANTIN [Concomitant]
  10. DECADRON [Concomitant]

REACTIONS (1)
  - Death [Fatal]
